FAERS Safety Report 7517955-9 (Version None)
Quarter: 2011Q2

REPORT INFORMATION
  Report Type: 
  Country: None (occurrence: None)
  Receive Date: 20110602
  Receipt Date: 20110520
  Transmission Date: 20111010
  Serious: Yes (Hospitalization, Other)
  Sender: FDA-Public Use
  Company Number: RU-BAYER-201032083GPV

PATIENT
  Age: 63 Year
  Sex: Male
  Weight: 72 kg

DRUGS (5)
  1. ERLOTINIB HYDROCHLORIDE [Suspect]
     Indication: HEPATIC NEOPLASM MALIGNANT
     Dosage: 150 MG, QD
     Route: 048
     Dates: start: 20100628, end: 20100811
  2. MONOPRIL [Concomitant]
     Indication: HYPERTENSION
     Dosage: 20 MG (DAILY DOSE), QD, ORAL
     Route: 048
     Dates: start: 20100701
  3. SORAFENIB (RAF KINASE INHIBITOR) [Suspect]
     Indication: HEPATIC NEOPLASM MALIGNANT
     Dosage: 400 MG, BID
     Route: 048
     Dates: start: 20100628, end: 20100811
  4. BETALOC [Concomitant]
     Indication: HYPERTENSION
     Dosage: 50 MG (DAILY DOSE), QD, ORAL
     Route: 048
     Dates: start: 20100701
  5. PREDUCTAL [Concomitant]
     Indication: HYPERTENSION
     Dosage: 35 MG (DAILY DOSE), QD, ORAL
     Route: 048
     Dates: start: 20100701

REACTIONS (4)
  - HYPERSENSITIVITY [None]
  - HYPOTENSION [None]
  - RASH [None]
  - LOSS OF CONSCIOUSNESS [None]
